FAERS Safety Report 8570248-3 (Version None)
Quarter: 2012Q3

REPORT INFORMATION
  Report Type: 
  Country: None (occurrence: None)
  Receive Date: 20120803
  Receipt Date: 20120725
  Transmission Date: 20120928
  Serious: Yes (Hospitalization)
  Sender: FDA-Public Use
  Company Number: NL-BAXTER-2012BAX011591

PATIENT
  Age: 49 Year
  Sex: Female

DRUGS (1)
  1. TISSEEL VH KIT [Suspect]
     Indication: WOUND CLOSURE
     Route: 061
     Dates: start: 20120628, end: 20120628

REACTIONS (1)
  - SEROMA [None]
